FAERS Safety Report 16326465 (Version 2)
Quarter: 2019Q2

REPORT INFORMATION
  Report Type: Spontaneous
  Country: FR (occurrence: FR)
  Receive Date: 20190517
  Receipt Date: 20190530
  Transmission Date: 20190711
  Serious: Yes (Hospitalization)
  Sender: FDA-Public Use
  Company Number: FR-PFIZER INC-2019203965

PATIENT
  Age: 86 Year
  Sex: Female
  Weight: 58 kg

DRUGS (7)
  1. DOXYCYCLINE. [Concomitant]
     Active Substance: DOXYCYCLINE
     Dosage: UNK
  2. DILTIAZEM HYDROCHLORIDE. [Concomitant]
     Active Substance: DILTIAZEM HYDROCHLORIDE
     Dosage: UNK
  3. ATORVASTATIN [Concomitant]
     Active Substance: ATORVASTATIN
     Dosage: UNK
  4. PIROXICAM. [Suspect]
     Active Substance: PIROXICAM
     Indication: OSTEOARTHRITIS
     Dosage: UNK
     Route: 048
     Dates: start: 20190402, end: 20190409
  5. LOSARTAN POTASSSIUM [Concomitant]
     Dosage: UNK
  6. SEROPLEX [Concomitant]
     Active Substance: ESCITALOPRAM OXALATE
     Dosage: UNK
  7. PRAZEPAM [Concomitant]
     Active Substance: PRAZEPAM
     Dosage: UNK

REACTIONS (2)
  - Eosinophilic pneumonia [Recovering/Resolving]
  - Alveolitis [Recovering/Resolving]

NARRATIVE: CASE EVENT DATE: 20190407
